FAERS Safety Report 5780003-5 (Version None)
Quarter: 2008Q2

REPORT INFORMATION
  Report Type: 
  Country: None (occurrence: None)
  Receive Date: 20080620
  Receipt Date: 20080616
  Transmission Date: 20081010
  Serious: Yes (Disabling)
  Sender: FDA-Public Use
  Company Number: JP-BAYER-200811024BYL

PATIENT
  Age: 61 Year
  Sex: Male
  Weight: 86 kg

DRUGS (3)
  1. NEXAVAR [Suspect]
     Indication: RENAL CELL CARCINOMA STAGE IV
     Dosage: TOTAL DAILY DOSE: 800 MG  UNIT DOSE: 400 MG
     Route: 048
     Dates: start: 20080516, end: 20080525
  2. AMARYL [Concomitant]
     Indication: DIABETES MELLITUS
     Dosage: TOTAL DAILY DOSE: 1 MG  UNIT DOSE: 1 MG
     Route: 048
     Dates: start: 20070807
  3. CONIEL [Concomitant]
     Indication: HYPERTENSION
     Dosage: TOTAL DAILY DOSE: 2 MG  UNIT DOSE: 2 MG
     Route: 048
     Dates: start: 20070807

REACTIONS (4)
  - HEPATIC FUNCTION ABNORMAL [None]
  - LIPASE INCREASED [None]
  - PAIN OF SKIN [None]
  - TOXIC SKIN ERUPTION [None]
